FAERS Safety Report 4840419-8 (Version None)
Quarter: 2005Q4

REPORT INFORMATION
  Report Type: 
  Country: None (occurrence: None)
  Receive Date: 20051031
  Receipt Date: 20050721
  Transmission Date: 20060501
  Serious: Yes (Life-Threatening)
  Sender: FDA-Public Use
  Company Number: 200515847US

PATIENT
  Sex: Female

DRUGS (1)
  1. KETEK [Suspect]
     Indication: ACUTE SINUSITIS
     Dosage: 400 MG QD PO
     Route: 048
     Dates: start: 20050709, end: 20050709

REACTIONS (1)
  - HYPERSENSITIVITY [None]
